FAERS Safety Report 4456335-X (Version None)
Quarter: 2004Q3

REPORT INFORMATION
  Report Type: 
  Country: None (occurrence: None)
  Receive Date: 20040917
  Receipt Date: 20040830
  Transmission Date: 20050211
  Serious: Yes (Hospitalization, Other)
  Sender: FDA-Public Use
  Company Number: US_001254882

PATIENT
  Age: 73 Year
  Sex: Male
  Weight: 136 kg

DRUGS (5)
  1. HUMULIN N [Suspect]
     Indication: DIABETES MELLITUS
     Dosage: 40 U/DAY
     Dates: start: 20001101
  2. HUMULIN 70/30 [Suspect]
     Indication: DIABETES MELLITUS
     Dates: end: 20001101
  3. HUMALOG [Suspect]
     Indication: DIABETES MELLITUS
     Dates: end: 20020101
  4. CARDURA [Concomitant]
  5. MECLIZINE [Concomitant]

REACTIONS (16)
  - BACK PAIN [None]
  - BLOOD GLUCOSE INCREASED [None]
  - CARDIAC DISORDER [None]
  - CAROTID ARTERY OCCLUSION [None]
  - CEREBROVASCULAR ACCIDENT [None]
  - CONCUSSION [None]
  - DIABETES MELLITUS INADEQUATE CONTROL [None]
  - DRY SKIN [None]
  - FALL [None]
  - FATIGUE [None]
  - HEART RATE DECREASED [None]
  - MEMORY IMPAIRMENT [None]
  - NEUROPATHY PERIPHERAL [None]
  - TRANSIENT ISCHAEMIC ATTACK [None]
  - TREMOR [None]
  - WEIGHT INCREASED [None]
